FAERS Safety Report 10236505 (Version 1)
Quarter: 2014Q2

REPORT INFORMATION
  Report Type: Spontaneous
  Country: US (occurrence: US)
  Receive Date: 20140613
  Receipt Date: 20140613
  Transmission Date: 20141212
  Serious: No
  Sender: FDA-Public Use
  Company Number: US-PFIZER INC-2014161245

PATIENT
  Age: 56 Year
  Sex: Female
  Weight: 129.7 kg

DRUGS (7)
  1. NICOTROL INHALER [Suspect]
     Indication: NICOTINE DEPENDENCE
     Dosage: 4 MG, AS NEEDED (UP TO 80 INHALATIONS AND 16 CARTRIDGE/ DAY)
     Route: 055
     Dates: start: 20111019, end: 20111230
  2. MELOXICAM [Concomitant]
     Dosage: 15 MG, AS NEEDED (DAILY)
     Route: 048
  3. ZOLOFT [Concomitant]
     Dosage: 150 MG, DAILY (100MG 1.5 TABS DAILY)
     Route: 048
  4. FLUOXETINE [Concomitant]
     Dosage: 40 MG, DAILY
     Route: 048
  5. DOXAZOSIN [Concomitant]
     Dosage: 2 MG, DAILY
     Route: 048
  6. NORVASC [Concomitant]
     Dosage: 10 MG, DAILY
     Route: 048
  7. AMITRIPTYLINE [Concomitant]
     Dosage: 50 MG, EVERY EVENING
     Route: 048

REACTIONS (3)
  - Dry mouth [Recovered/Resolved]
  - Headache [Recovered/Resolved]
  - Drug hypersensitivity [Unknown]
